FAERS Safety Report 4658883-6 (Version None)
Quarter: 2005Q2

REPORT INFORMATION
  Report Type: 
  Country: None (occurrence: None)
  Receive Date: 20050509
  Receipt Date: 20050429
  Transmission Date: 20051028
  Serious: Yes (Other)
  Sender: FDA-Public Use
  Company Number: 200511659BCC

PATIENT
  Age: 71 Year
  Sex: Female
  Weight: 49.8957 kg

DRUGS (2)
  1. MILK OF MAGNESIA TAB [Suspect]
     Indication: CONSTIPATION
     Dosage: IRR, ORAL
     Route: 048
     Dates: start: 20040101
  2. MILK OF MAGNESIA TAB [Suspect]
     Indication: GASTROINTESTINAL DISORDER
     Dosage: IRR, ORAL
     Route: 048
     Dates: start: 20040101

REACTIONS (3)
  - BLOOD POTASSIUM DECREASED [None]
  - BLOOD SODIUM DECREASED [None]
  - URINARY RETENTION [None]
